FAERS Safety Report 5818555-9 (Version None)
Quarter: 2008Q3

REPORT INFORMATION
  Report Type: 
  Country: None (occurrence: None)
  Receive Date: 20080718
  Receipt Date: 20080530
  Transmission Date: 20090109
  Serious: Yes (Hospitalization, Disabling)
  Sender: FDA-Public Use
  Company Number: 2008US000781

PATIENT
  Age: 41 Year
  Sex: Female
  Weight: 93.2 kg

DRUGS (8)
  1. AMEVIVE [Suspect]
     Indication: PSORIASIS
     Dosage: 15 MG, WEEKLY, INTRAMUSCULAR
     Route: 030
     Dates: start: 20050908, end: 20070412
  2. PROTOPIC [Concomitant]
  3. TRIAMCINOLONE [Concomitant]
  4. ACLOVATE (ALCLOMETASONE DIPROPIONATE) [Concomitant]
  5. OLUX [Concomitant]
  6. CLOBEX (CLOBETASOLE PROPIONATE) [Concomitant]
  7. DERMA-SMOOTHE/FS [Concomitant]
  8. ADOXA (DOXYCYCLINE) [Concomitant]

REACTIONS (2)
  - ADENOMYOSIS [None]
  - STRESS URINARY INCONTINENCE [None]
